FAERS Safety Report 5068477-9 (Version None)
Quarter: 2006Q3

REPORT INFORMATION
  Report Type: 
  Country: None (occurrence: None)
  Receive Date: 20060802
  Receipt Date: 20051017
  Transmission Date: 20061208
  Serious: Yes (Other)
  Sender: FDA-Public Use
  Company Number: US-BRISTOL-MYERS SQUIBB COMPANY-13146493

PATIENT
  Age: 50 Year
  Sex: Male
  Weight: 104 kg

DRUGS (11)
  1. COUMADIN [Suspect]
     Indication: AORTIC VALVE REPLACEMENT
     Dosage: DOSE REGIMEN: ONE 2.5 MG TABLET FOR TWO DAYS ALTERNATING W/HALF A 2.5 MILLIGRAM TABLET FOR ONE DAY.
     Route: 048
     Dates: start: 19940101
  2. PLENDIL [Concomitant]
  3. ZOLOFT [Concomitant]
  4. HUMALOG [Concomitant]
     Dates: end: 20051016
  5. TOPROL-XL [Concomitant]
  6. AVAPRO [Concomitant]
  7. PREDNISONE [Concomitant]
     Dates: start: 19980101
  8. PROGRAF [Concomitant]
     Dates: start: 19980101
  9. TERAZOSIN HCL [Concomitant]
     Dates: start: 19940101
  10. CLONIDINE [Concomitant]
     Dates: start: 19980101
  11. ALLOPURINOL [Concomitant]

REACTIONS (2)
  - BLOOD GLUCOSE INCREASED [None]
  - INJECTION SITE HAEMORRHAGE [None]
